FAERS Safety Report 4599669-0 (Version None)
Quarter: 2005Q1

REPORT INFORMATION
  Report Type: 
  Country: None (occurrence: None)
  Receive Date: 20050304
  Receipt Date: 20050304
  Transmission Date: 20050727
  Serious: Yes (Hospitalization)
  Sender: FDA-Public Use
  Company Number: None

PATIENT
  Age: 73 Year
  Sex: Female
  Weight: 59 kg

DRUGS (3)
  1. TAXOTERE [Suspect]
     Indication: GASTRIC CANCER
     Dosage: 30 IV
     Route: 042
     Dates: start: 20050216
  2. CISPLATIN [Suspect]
     Indication: GASTRIC CANCER
     Dosage: 25 IV
     Route: 042
     Dates: start: 20050216
  3. CPT-11 (MG/M2) DAYS 1 AND 8 OF 21 DAY CYCLE [Suspect]
     Indication: GASTRIC CANCER
     Dosage: 50 IV
     Route: 042
     Dates: start: 20050216

REACTIONS (8)
  - ABDOMINAL PAIN [None]
  - BLOOD CREATININE INCREASED [None]
  - DEHYDRATION [None]
  - DIARRHOEA [None]
  - FATIGUE [None]
  - INSOMNIA [None]
  - ORAL INTAKE REDUCED [None]
  - VOMITING [None]
